FAERS Safety Report 17176196 (Version 1)
Quarter: 2019Q4

REPORT INFORMATION
  Report Type: Spontaneous
  Country: US (occurrence: US)
  Receive Date: 20191219
  Receipt Date: 20191219
  Transmission Date: 20200122
  Serious: No
  Sender: FDA-Public Use
  Company Number: US-ASTRAZENECA-2019SF67002

PATIENT
  Age: 70 Year
  Sex: Female
  Weight: 90.3 kg

DRUGS (2)
  1. BYDUREON BCISE [Suspect]
     Active Substance: EXENATIDE
     Indication: TYPE 2 DIABETES MELLITUS
     Route: 065
  2. SULFUR. [Concomitant]
     Active Substance: SULFUR

REACTIONS (3)
  - Injection site nodule [Unknown]
  - Incorrect dose administered by device [Unknown]
  - Device issue [Unknown]
